FAERS Safety Report 7338780-8 (Version None)
Quarter: 2011Q1

REPORT INFORMATION
  Report Type: 
  Country: None (occurrence: None)
  Receive Date: 20110308
  Receipt Date: 20110223
  Transmission Date: 20110831
  Serious: Yes (Other)
  Sender: FDA-Public Use
  Company Number: PHHY2011AT14959

PATIENT
  Age: 80 Year
  Sex: Male

DRUGS (1)
  1. RASILEZ [Suspect]

REACTIONS (2)
  - ATRIAL TACHYCARDIA [None]
  - ATRIAL FIBRILLATION [None]
